FAERS Safety Report 6491910-2 (Version None)
Quarter: 2009Q4

REPORT INFORMATION
  Report Type: 
  Country: None (occurrence: None)
  Receive Date: 20091125
  Receipt Date: 20090826
  Transmission Date: 20100525
  Serious: Yes (Hospitalization)
  Sender: FDA-Public Use
  Company Number: 2009BH013093

PATIENT
  Age: 72 Year
  Sex: Male

DRUGS (14)
  1. DIANEAL [Suspect]
     Indication: PERITONEAL DIALYSIS
     Dosage: 12 L ; EVERY DAY ; IP
     Route: 033
     Dates: start: 20071217
  2. EPOETIN NOS [Concomitant]
  3. BENICAR [Concomitant]
  4. COREG [Concomitant]
  5. FERROUS GLUCONATE [Concomitant]
  6. FUROSEMIDE [Concomitant]
  7. HUMALOG [Concomitant]
  8. MEGACE [Concomitant]
  9. NEPHRO-VITE RX [Concomitant]
  10. NIFEDIPINE [Concomitant]
  11. POTASSIUM CHLORIDE [Concomitant]
  12. VYTORIN [Concomitant]
  13. ZEMPLAR [Concomitant]
  14. NEXIUM [Concomitant]

REACTIONS (1)
  - PERITONITIS BACTERIAL [None]
